FAERS Safety Report 5940149-5 (Version None)
Quarter: 2008Q4

REPORT INFORMATION
  Report Type: 
  Country: None (occurrence: None)
  Receive Date: 20081104
  Receipt Date: 20081103
  Transmission Date: 20090506
  Serious: Yes (Hospitalization)
  Sender: FDA-Public Use
  Company Number: PHRM2008FR00470

PATIENT
  Sex: Male

DRUGS (15)
  1. LIORESAL [Suspect]
     Dosage: 5 MG, TID
     Route: 048
     Dates: start: 20070810, end: 20070822
  2. TAHOR [Concomitant]
     Dosage: 40 MG, QD
     Route: 048
     Dates: start: 20070601, end: 20070813
  3. TAHOR [Concomitant]
     Dosage: 80 MG, QD
     Route: 048
     Dates: start: 20070814
  4. PREVISCAN [Concomitant]
     Dosage: 10 MG, QD
     Route: 048
     Dates: start: 20070814
  5. KARDEGIC [Concomitant]
     Dosage: 160 MG, QD
     Route: 048
     Dates: start: 20050101
  6. DOLIPRANE [Concomitant]
     Dosage: 500 MG, PRN
     Route: 048
     Dates: start: 20070605
  7. COVERSYL /FRA/ [Concomitant]
     Dosage: 2 MG, QD
     Route: 048
     Dates: start: 20070601, end: 20070611
  8. COVERSYL /FRA/ [Concomitant]
     Dosage: 4 MG, QD
     Route: 048
     Dates: start: 20070612
  9. DEROXAT [Concomitant]
     Dosage: 20 MG, QD
     Route: 048
     Dates: start: 20070530
  10. ATARAX /POR/ [Concomitant]
     Dosage: 50 MG, QD
     Route: 048
     Dates: start: 20070613
  11. FLUDEX [Concomitant]
     Dosage: 1.5 MG, QD
     Route: 048
     Dates: start: 20070618
  12. XANAX [Concomitant]
     Dosage: 0.25 MG, QD
     Route: 048
     Dates: start: 20070623
  13. OGASTRO [Concomitant]
     Dosage: 15 MG, QD
     Route: 048
     Dates: start: 20070529
  14. GAVISCON ^RECKITT + COLMAN^ [Concomitant]
     Dosage: 1 DF, TID
     Route: 048
     Dates: start: 20070624
  15. DOMPERIDONE ^JANSSEN^ [Concomitant]
     Dosage: 10 MG, TID
     Route: 048
     Dates: start: 20070625

REACTIONS (5)
  - ALANINE AMINOTRANSFERASE INCREASED [None]
  - ASPARTATE AMINOTRANSFERASE INCREASED [None]
  - BLOOD ALKALINE PHOSPHATASE INCREASED [None]
  - CYTOLYTIC HEPATITIS [None]
  - GAMMA-GLUTAMYLTRANSFERASE INCREASED [None]
